FAERS Safety Report 9565167 (Version 6)
Quarter: 2016Q4

REPORT INFORMATION
  Report Type: Spontaneous
  Country: JP (occurrence: JP)
  Receive Date: 20130930
  Receipt Date: 20161003
  Transmission Date: 20170207
  Serious: Yes (Other)
  Sender: FDA-Public Use
  Company Number: JP-PFIZER INC-2013276081

PATIENT
  Age: 27 Year
  Sex: Male
  Weight: 58 kg

DRUGS (8)
  1. CISPLATIN. [Concomitant]
     Active Substance: CISPLATIN
     Indication: TESTICULAR NEOPLASM
     Dosage: 30 MG/M2 DAYS 3-4 (FOUR CYCLES)
     Route: 041
  2. VINCRISTINE SULFATE. [Concomitant]
     Active Substance: VINCRISTINE SULFATE
     Indication: METASTASES TO LYMPH NODES
  3. PEPLOMYCIN [Concomitant]
     Active Substance: PEPLOMYCIN
     Indication: TESTICULAR NEOPLASM
     Dosage: 10 MG/M2, DAYS 1-3,(FOUR CYCLES)
     Dates: end: 200209
  4. ETOPOSIDE. [Suspect]
     Active Substance: ETOPOSIDE
     Indication: TESTICULAR NEOPLASM
     Dosage: 100 MG/M2, DAYS 3-5 (FOUR CYCLES)
     Dates: end: 200209
  5. ETOPOSIDE. [Suspect]
     Active Substance: ETOPOSIDE
     Indication: METASTASES TO LYMPH NODES
  6. METHOTREXATE SODIUM. [Concomitant]
     Active Substance: METHOTREXATE SODIUM
     Indication: TESTICULAR GERM CELL TUMOUR
     Dosage: 10 MG/M2, DAY 1 (FOUR CYCLES)
     Route: 041
     Dates: end: 200209
  7. VINCRISTINE SULFATE. [Concomitant]
     Active Substance: VINCRISTINE SULFATE
     Indication: TESTICULAR NEOPLASM
     Dosage: 0.6 MG/M2, DAYS 1-2  (FOUR CYCLES)
     Dates: end: 200209
  8. PEPLOMYCIN [Concomitant]
     Active Substance: PEPLOMYCIN
     Indication: METASTASES TO LYMPH NODES

REACTIONS (2)
  - Acute myeloid leukaemia [Recovered/Resolved]
  - Second primary malignancy [Recovered/Resolved]
